FAERS Safety Report 17431742 (Version 3)
Quarter: 2020Q3

REPORT INFORMATION
  Report Type: Report from Study
  Country: EG (occurrence: EG)
  Receive Date: 20200218
  Receipt Date: 20200710
  Transmission Date: 20201102
  Serious: Yes (Disabling, Other)
  Sender: FDA-Public Use
  Company Number: NVSC2020EG040650

PATIENT
  Age: 58 Year
  Sex: Female

DRUGS (4)
  1. AFINITOR [Suspect]
     Active Substance: EVEROLIMUS
     Dosage: ONE TAB 10MG FOR DAY AND ANOTHER DAY HALF TAB 10MG
     Route: 048
     Dates: start: 20200627
  2. AFINITOR [Suspect]
     Active Substance: EVEROLIMUS
     Dosage: 1 DF, QD (ONE TABLET ONCE DAILY)
     Route: 048
     Dates: start: 202004
  3. AFINITOR [Suspect]
     Active Substance: EVEROLIMUS
     Indication: BREAST CANCER
     Dosage: 1 DF, QD (ONE TABLET ONCE DAILY)
     Route: 048
     Dates: start: 201909, end: 201912
  4. AFINITOR [Suspect]
     Active Substance: EVEROLIMUS
     Dosage: 0.5 DF, QD (HALF TAB 10 MG PER DAY)
     Route: 048
     Dates: start: 20200604, end: 20200626

REACTIONS (18)
  - Pneumonia [Unknown]
  - Pulmonary fibrosis [Unknown]
  - Hepatic fibrosis [Not Recovered/Not Resolved]
  - Face oedema [Unknown]
  - Metastases to lymph nodes [Unknown]
  - Metastases to bone [Unknown]
  - Mouth ulceration [Not Recovered/Not Resolved]
  - Dyspnoea [Not Recovered/Not Resolved]
  - Pyrexia [Unknown]
  - Incorrect dose administered [Not Recovered/Not Resolved]
  - Liver function test increased [Not Recovered/Not Resolved]
  - Sinus disorder [Not Recovered/Not Resolved]
  - Tumour marker increased [Not Recovered/Not Resolved]
  - Throat irritation [Not Recovered/Not Resolved]
  - Facial pain [Unknown]
  - Hepatic infection [Unknown]
  - Tongue ulceration [Not Recovered/Not Resolved]
  - Dry mouth [Not Recovered/Not Resolved]

NARRATIVE: CASE EVENT DATE: 201910
